FAERS Safety Report 10328916 (Version 1)
Quarter: 2014Q3

REPORT INFORMATION
  Report Type: Spontaneous
  Country: US (occurrence: None)
  Receive Date: 20140718
  Receipt Date: 20140718
  Transmission Date: 20150326
  Serious: Yes (Other)
  Sender: FDA-Public Use
  Company Number: None

PATIENT
  Age: 65 Year
  Sex: Female
  Weight: 60.78 kg

DRUGS (3)
  1. SIMPONI [Suspect]
     Active Substance: GOLIMUMAB
     Indication: PSORIASIS
     Dosage: 50MG, MONTHLY, SUB-Q
     Route: 058
     Dates: start: 20140304, end: 20140624
  2. ADVIL [Concomitant]
     Active Substance: IBUPROFEN
  3. SIMPONI [Suspect]
     Active Substance: GOLIMUMAB
     Dosage: 50MG, MONTHLY, SUB-Q
     Route: 058
     Dates: start: 20140304, end: 20140624

REACTIONS (1)
  - Drug ineffective [None]

NARRATIVE: CASE EVENT DATE: 20140630
